FAERS Safety Report 24726876 (Version 1)
Quarter: 2024Q4

REPORT INFORMATION
  Report Type: Spontaneous
  Country: US (occurrence: None)
  Receive Date: 20241212
  Receipt Date: 20241212
  Transmission Date: 20250114
  Serious: Yes (Death, Hospitalization)
  Sender: Public
  Company Number: None

PATIENT
  Age: 72 Year
  Sex: Female
  Weight: 81.6 kg

DRUGS (3)
  1. CARBOPLATIN [Suspect]
     Active Substance: CARBOPLATIN
     Dates: end: 20241119
  2. PEMBROLIZUMAB [Suspect]
     Active Substance: PEMBROLIZUMAB
     Dates: end: 20241119
  3. ALIMTA [Suspect]
     Active Substance: PEMETREXED DISODIUM
     Dates: end: 20241119

REACTIONS (8)
  - Pleural effusion [None]
  - Atrial fibrillation [None]
  - Dyspnoea [None]
  - Anaemia [None]
  - Neutrophil count decreased [None]
  - White blood cell count decreased [None]
  - Malignant neoplasm progression [None]
  - Bronchial disorder [None]

NARRATIVE: CASE EVENT DATE: 20241203
